FAERS Safety Report 16416045 (Version 1)
Quarter: 2019Q2

REPORT INFORMATION
  Report Type: Spontaneous
  Country: US (occurrence: US)
  Receive Date: 20190503
  Receipt Date: 20190503
  Transmission Date: 20190711
  Serious: Yes (Other)
  Sender: FDA-Public Use
  Company Number: None

PATIENT
  Age: 61 Year
  Sex: Female
  Weight: 79.38 kg

DRUGS (6)
  1. CALCIUM W/D+MAGNESIUM [Concomitant]
  2. VITAMIN B COMPLEX [Concomitant]
     Active Substance: CYANOCOBALAMIN\DEXPANTHENOL\NIACINAMIDE\PYRIDOXINE HYDROCHLORIDE\RIBOFLAVIN 5^-PHOSPHATE SODIUM\THIAMINE HYDROCHLORIDE\VITAMIN B COMPLEX
  3. GABAPENTIN. [Suspect]
     Active Substance: GABAPENTIN
     Indication: TRIGEMINAL NEURALGIA
     Dosage: ?          QUANTITY:600 MG MILLIGRAM(S);?
     Route: 048
     Dates: start: 2012
  4. SINUS MEDS [Concomitant]
  5. OMEPRAZOLE. [Concomitant]
     Active Substance: OMEPRAZOLE
  6. MULTI-VITS [Concomitant]

REACTIONS (9)
  - Tooth fracture [None]
  - Hypovitaminosis [None]
  - Trigeminal neuralgia [None]
  - Pain [None]
  - Vitamin D deficiency [None]
  - Rapidly progressive osteoarthritis [None]
  - Nail avulsion [None]
  - Alopecia [None]
  - Tooth extraction [None]

NARRATIVE: CASE EVENT DATE: 201808
